FAERS Safety Report 6603935-4 (Version None)
Quarter: 2010Q1

REPORT INFORMATION
  Report Type: 
  Country: None (occurrence: None)
  Receive Date: 20100226
  Receipt Date: 20090320
  Transmission Date: 20100710
  Serious: No
  Sender: FDA-Public Use
  Company Number: A0774619A

PATIENT
  Age: 50 Year
  Sex: Female

DRUGS (7)
  1. LAMICTAL CD [Suspect]
     Dosage: 25MG ALTERNATE DAYS
     Route: 048
     Dates: start: 20090306
  2. DEPAKOTE [Concomitant]
  3. NORTRIPTYLINE HCL [Concomitant]
  4. CLONAZEPAM [Concomitant]
  5. VICODIN [Concomitant]
  6. DIOVAN [Concomitant]
  7. ESTROGEN REPLACEMENT [Concomitant]

REACTIONS (2)
  - SKIN ULCER [None]
  - VULVOVAGINAL PRURITUS [None]
